FAERS Safety Report 4772040-4 (Version None)
Quarter: 2005Q3

REPORT INFORMATION
  Report Type: 
  Country: None (occurrence: None)
  Receive Date: 20050916
  Receipt Date: 20050901
  Transmission Date: 20060218
  Serious: Yes (Congenital Anomaly)
  Sender: FDA-Public Use
  Company Number: GXKR2005US01522

PATIENT

DRUGS (1)
  1. LOVASTATIN [Suspect]
     Dosage: 40 MG, QD, INTRA-UTERINE
     Route: 015

REACTIONS (7)
  - CONGENITAL CENTRAL NERVOUS SYSTEM ANOMALY [None]
  - CONGENITAL HAND MALFORMATION [None]
  - CONGENITAL HYDROCEPHALUS [None]
  - CONTRAINDICATION TO MEDICAL TREATMENT [None]
  - DRUG EXPOSURE DURING PREGNANCY [None]
  - MEDICATION ERROR [None]
  - MULTIPLE CONGENITAL ABNORMALITIES [None]
